FAERS Safety Report 21572878 (Version 1)
Quarter: 2022Q4

REPORT INFORMATION
  Report Type: Spontaneous
  Country: US (occurrence: US)
  Receive Date: 20221109
  Receipt Date: 20221109
  Transmission Date: 20230112
  Serious: No
  Sender: FDA-Public Use
  Company Number: US-PFIZER INC-202201282982

PATIENT
  Age: 72 Year
  Sex: Female
  Weight: 113.4 kg

DRUGS (1)
  1. MARCAINE [Suspect]
     Active Substance: BUPIVACAINE HYDROCHLORIDE
     Dosage: UNK, (SPINAL ROUTE)
     Route: 037

REACTIONS (1)
  - Drug ineffective [Unknown]
